FAERS Safety Report 23084802 (Version 1)
Quarter: 2023Q4

REPORT INFORMATION
  Report Type: Spontaneous
  Country: AU (occurrence: AU)
  Receive Date: 20231019
  Receipt Date: 20231019
  Transmission Date: 20240110
  Serious: Yes (Other)
  Sender: FDA-Public Use
  Company Number: AU-PFIZER INC-PV202300171526

PATIENT
  Age: 72 Year
  Sex: Female

DRUGS (1)
  1. LORLATINIB [Suspect]
     Active Substance: LORLATINIB
     Dosage: UNK
     Dates: start: 202309

REACTIONS (1)
  - Hallucination, auditory [Unknown]

NARRATIVE: CASE EVENT DATE: 20231001
